FAERS Safety Report 5066607-6 (Version None)
Quarter: 2006Q3

REPORT INFORMATION
  Report Type: 
  Country: None (occurrence: None)
  Receive Date: 20060712
  Receipt Date: 20060417
  Transmission Date: 20061208
  Serious: No
  Sender: FDA-Public Use
  Company Number: A03200602436

PATIENT
  Age: 58 Year
  Sex: Male

DRUGS (1)
  1. UROXATRAL [Suspect]
     Indication: PROSTATIC DISORDER
     Dosage: 10 MG OD - ORAL
     Route: 048
     Dates: start: 20060301

REACTIONS (1)
  - SKIN EXFOLIATION [None]
